FAERS Safety Report 11325255 (Version 1)
Quarter: 2015Q3

REPORT INFORMATION
  Report Type: Spontaneous
  Country: IT (occurrence: IT)
  Receive Date: 20150730
  Receipt Date: 20150730
  Transmission Date: 20151125
  Serious: Yes (Other)
  Sender: FDA-Public Use
  Company Number: IT-BAXTER-2015BAX040986

PATIENT
  Age: 81 Year
  Sex: Female

DRUGS (7)
  1. LENTO KALIUM [Suspect]
     Active Substance: POTASSIUM CHLORIDE
     Indication: PRODUCT USED FOR UNKNOWN INDICATION
     Route: 048
  2. METRONIDAZOLO BAXTER 0,5% [Suspect]
     Active Substance: METRONIDAZOLE
     Indication: ANTIBIOTIC PROPHYLAXIS
     Route: 042
     Dates: start: 20150611, end: 20150717
  3. VANCOMICINA [Suspect]
     Active Substance: VANCOMYCIN
     Indication: ANTIBIOTIC PROPHYLAXIS
     Route: 042
     Dates: start: 20150611, end: 20150722
  4. CONTRAMAL [Suspect]
     Active Substance: TRAMADOL HYDROCHLORIDE
     Indication: POSTOPERATIVE ANALGESIA
     Route: 065
  5. GENTOMIL [Suspect]
     Active Substance: GENTAMICIN SULFATE
     Indication: ANTIBIOTIC PROPHYLAXIS
     Route: 042
     Dates: start: 20150611, end: 20150722
  6. CLEXANE [Suspect]
     Active Substance: ENOXAPARIN SODIUM
     Indication: THROMBOSIS PROPHYLAXIS
     Route: 065
  7. MAGNESIO SOLFATO BIOINDUSTRIA [Suspect]
     Active Substance: MAGNESIUM SULFATE
     Indication: BLOOD MAGNESIUM DECREASED
     Dosage: 1 POSOLOGICAL UNIT
     Route: 065

REACTIONS (1)
  - Hypoacusis [Unknown]

NARRATIVE: CASE EVENT DATE: 20150722
